FAERS Safety Report 20515223 (Version 5)
Quarter: 2022Q2

REPORT INFORMATION
  Report Type: Report from Study
  Country: ES (occurrence: ES)
  Receive Date: 20220224
  Receipt Date: 20220602
  Transmission Date: 20220721
  Serious: Yes (Life-Threatening, Hospitalization, Other)
  Sender: FDA-Public Use
  Company Number: ES-BIOGEN-2022BI01098486

PATIENT
  Age: 50 Year
  Sex: Female

DRUGS (8)
  1. TYSABRI [Suspect]
     Active Substance: NATALIZUMAB
     Indication: Relapsing-remitting multiple sclerosis
     Dosage: NUMBER OF INTAKES PER FREQUENCY UNIT: 1 NUMBER OF FREQUENCY UNITS: 6 WEEK
     Route: 042
     Dates: start: 20120112, end: 20210427
  2. TYSABRI [Suspect]
     Active Substance: NATALIZUMAB
     Route: 042
     Dates: start: 20120112
  3. TYSABRI [Suspect]
     Active Substance: NATALIZUMAB
     Route: 042
     Dates: start: 20130617, end: 20210427
  4. QUETIAPINE FUMARATE [Concomitant]
     Active Substance: QUETIAPINE FUMARATE
     Indication: Product used for unknown indication
     Dosage: 60 COMPRIMIDOS RECUBIERTOS PELICULA EFG; 1 COMPRIMIT 24 HORES/ 60 FILM-COATED TABLETS; 1 TABLET 2...
     Route: 065
     Dates: start: 20211017
  5. FERROUS SULFATE [Concomitant]
     Active Substance: FERROUS SULFATE
     Indication: Product used for unknown indication
     Dosage: 30 COMPRIMIDOS RECUBIERTOS PELICULA EFG; 1 COMPRIMIT 24 HORES
     Route: 065
     Dates: start: 20220109
  6. MIRABEGRON [Concomitant]
     Active Substance: MIRABEGRON
     Indication: Product used for unknown indication
     Dosage: 30 COMPRIMIDOS DE LIBERACION PROLONGADA; 1 COMPRIMIT 24 HORES
     Route: 065
     Dates: start: 20220109
  7. VESICARE [Concomitant]
     Active Substance: SOLIFENACIN SUCCINATE
     Indication: Product used for unknown indication
     Dosage: 30 COMPRIMIDOS RECUBIERTOS CON PELICULA; 1 COMPRIMIT 24 HORES
     Route: 065
     Dates: start: 20220109
  8. POLARAMINE [Concomitant]
     Active Substance: DEXCHLORPHENIRAMINE MALEATE
     Indication: Product used for unknown indication
     Dosage: 20 COMPRIMIDOS
     Route: 065
     Dates: start: 20220109

REACTIONS (1)
  - Hodgkin^s disease [Not Recovered/Not Resolved]

NARRATIVE: CASE EVENT DATE: 20220211
